FAERS Safety Report 4476597-2 (Version None)
Quarter: 2004Q4

REPORT INFORMATION
  Report Type: 
  Country: None (occurrence: None)
  Receive Date: 20041013
  Receipt Date: 20041001
  Transmission Date: 20050328
  Serious: Yes (Death)
  Sender: FDA-Public Use
  Company Number: HQWYE561506OCT04

PATIENT
  Age: 17 Year
  Sex: 0

DRUGS (2)
  1. PHENERGAN [Suspect]
     Dates: start: 20030101, end: 20030101
  2. MEPERIDINE HCL [Suspect]
     Dates: start: 20030101, end: 20030101

REACTIONS (2)
  - ADVERSE DRUG REACTION [None]
  - MULTIPLE DRUG OVERDOSE [None]
